FAERS Safety Report 8439304-4 (Version None)
Quarter: 2012Q2

REPORT INFORMATION
  Report Type: 
  Country: None (occurrence: None)
  Receive Date: 20120615
  Receipt Date: 20120613
  Transmission Date: 20120825
  Serious: Yes (Hospitalization, Other)
  Sender: FDA-Public Use
  Company Number: PHHY2006SG009434

PATIENT
  Sex: Male

DRUGS (6)
  1. BISOPROLOL FUMARATE [Concomitant]
     Dosage: 1 DF, OM
  2. IMATINIB MESYLATE [Suspect]
     Indication: CHRONIC MYELOID LEUKAEMIA
     Dosage: 300 MG, DAILY
     Route: 048
     Dates: start: 20050124
  3. ASPIRIN [Concomitant]
     Dosage: 1 DF, OM
  4. IMATINIB MESYLATE [Suspect]
     Dosage: 400 MG,DAILY
     Route: 048
     Dates: start: 20060101
  5. LOSARTAN POTASSIUM [Concomitant]
     Dosage: 50 MG, OM
  6. AMLODIPINE [Concomitant]
     Dosage: 5 MG, OM

REACTIONS (12)
  - SUICIDAL IDEATION [None]
  - HAEMOPTYSIS [None]
  - VOMITING [None]
  - JOINT SWELLING [None]
  - MUSCULAR WEAKNESS [None]
  - OEDEMA PERIPHERAL [None]
  - CHEST PAIN [None]
  - PULMONARY THROMBOSIS [None]
  - DECREASED APPETITE [None]
  - ABDOMINAL DISTENSION [None]
  - FALL [None]
  - DIARRHOEA [None]
